FAERS Safety Report 5982739-X (Version None)
Quarter: 2008Q4

REPORT INFORMATION
  Report Type: 
  Country: None (occurrence: None)
  Receive Date: 20081208
  Receipt Date: 20081105
  Transmission Date: 20090506
  Serious: No
  Sender: FDA-Public Use
  Company Number: US-BAYER-200838017NA

PATIENT
  Age: 39 Year
  Sex: Female
  Weight: 50 kg

DRUGS (1)
  1. YAZ [Suspect]
     Indication: CONTRACEPTION
     Route: 048
     Dates: start: 20080901, end: 20081104

REACTIONS (9)
  - ABDOMINAL DISTENSION [None]
  - ABNORMAL WITHDRAWAL BLEEDING [None]
  - DEPRESSION [None]
  - FATIGUE [None]
  - HEADACHE [None]
  - METRORRHAGIA [None]
  - MOOD ALTERED [None]
  - NAUSEA [None]
  - WEIGHT INCREASED [None]
